FAERS Safety Report 9980660 (Version 2)
Quarter: 2014Q1

REPORT INFORMATION
  Report Type: Spontaneous
  Country: US (occurrence: US)
  Receive Date: 20140307
  Receipt Date: 20140307
  Transmission Date: 20141002
  Serious: Yes (Hospitalization, Other)
  Sender: FDA-Public Use
  Company Number: US-BEH-2013035109

PATIENT
  Age: 56 Year
  Sex: Female

DRUGS (3)
  1. BERINERT-P [Suspect]
     Indication: HEREDITARY ANGIOEDEMA
     Route: 042
     Dates: start: 20100913
  2. BERINERT-P [Suspect]
     Dosage: 20 UNITS/KG
     Route: 042
     Dates: start: 20130529
  3. BERINERT-P [Suspect]
     Dosage: 20 UNITS/KG
     Route: 042
     Dates: start: 20130530

REACTIONS (9)
  - Drug ineffective [Recovering/Resolving]
  - Abdominal pain [Recovering/Resolving]
  - Hereditary angioedema [Unknown]
  - Abdominal distension [Unknown]
  - Abdominal distension [Unknown]
  - Pain [Unknown]
  - Pain [Unknown]
  - Nausea [Unknown]
  - Nausea [Unknown]
